FAERS Safety Report 4533713-1 (Version None)
Quarter: 2004Q4

REPORT INFORMATION
  Report Type: 
  Country: None (occurrence: None)
  Receive Date: 20041221
  Receipt Date: 20041115
  Transmission Date: 20050328
  Serious: Yes (Other)
  Sender: FDA-Public Use
  Company Number: JP-GLAXOSMITHKLINE-B0357157A

PATIENT
  Age: 68 Year
  Sex: Male
  Weight: 67 kg

DRUGS (3)
  1. ZOVIRAX [Suspect]
     Indication: HERPETIC STOMATITIS
     Dosage: 250MG THREE TIMES PER DAY
     Route: 048
     Dates: start: 20041111, end: 20041117
  2. CEFOTIAM HYDROCHLORIDE [Concomitant]
     Indication: LARYNGOPHARYNGITIS
     Dosage: 2G PER DAY
     Route: 042
     Dates: start: 20041111, end: 20041117
  3. SAXIZON [Concomitant]
     Indication: LARYNGOPHARYNGITIS
     Dosage: 600MG PER DAY
     Route: 042
     Dates: start: 20041111, end: 20041112

REACTIONS (1)
  - GOUT [None]
